FAERS Safety Report 5192686-1 (Version None)
Quarter: 2006Q4

REPORT INFORMATION
  Report Type: 
  Country: None (occurrence: None)
  Receive Date: 20061228
  Receipt Date: 20061220
  Transmission Date: 20070319
  Serious: Yes (Death, Life-Threatening, Hospitalization, Other)
  Sender: FDA-Public Use
  Company Number: FR-JNJFOC-20060105588

PATIENT
  Sex: Female
  Weight: 70 kg

DRUGS (19)
  1. INFLIXIMAB [Suspect]
     Route: 042
  2. INFLIXIMAB [Suspect]
     Route: 042
  3. INFLIXIMAB [Suspect]
     Route: 042
  4. INFLIXIMAB [Suspect]
     Route: 042
  5. INFLIXIMAB [Suspect]
     Route: 042
  6. INFLIXIMAB [Suspect]
     Route: 042
  7. INFLIXIMAB [Suspect]
     Indication: CROHN'S DISEASE
     Route: 042
  8. AZATHIOPRINE [Suspect]
     Indication: CROHN'S DISEASE
  9. LEVOTHYROXINE SODIUM [Concomitant]
  10. LEVOTHYROXINE SODIUM [Concomitant]
     Indication: HYPERTHYROIDISM
  11. CORTANCYL [Concomitant]
     Indication: CROHN'S DISEASE
     Route: 065
  12. IDARUBICINE [Concomitant]
     Route: 065
  13. CYTARABINE [Concomitant]
     Route: 065
  14. CYTARABINE [Concomitant]
     Route: 065
  15. CYTARABINE [Concomitant]
     Route: 065
  16. DAUNORUBICIN HCL [Concomitant]
     Route: 065
  17. DAUNORUBICIN HCL [Concomitant]
     Route: 065
  18. ETOPOSIDE [Concomitant]
     Route: 065
  19. LEXOMIL [Concomitant]
     Route: 065

REACTIONS (1)
  - ACUTE MYELOID LEUKAEMIA [None]
